FAERS Safety Report 4600844-7 (Version None)
Quarter: 2005Q1

REPORT INFORMATION
  Report Type: 
  Country: None (occurrence: None)
  Receive Date: 20050127
  Receipt Date: 20041101
  Transmission Date: 20050727
  Serious: No
  Sender: FDA-Public Use
  Company Number: USA041182812

PATIENT
  Sex: Female

DRUGS (3)
  1. STRATTERA [Suspect]
     Indication: ATTENTION DEFICIT/HYPERACTIVITY DISORDER
     Dosage: 40 MG
     Dates: start: 20041001, end: 20041031
  2. ALBUTEROL [Concomitant]
  3. PROZAC [Concomitant]

REACTIONS (12)
  - ANXIETY [None]
  - DIZZINESS [None]
  - DRUG INTERACTION [None]
  - FATIGUE [None]
  - FEELING ABNORMAL [None]
  - FEELING JITTERY [None]
  - HEART RATE INCREASED [None]
  - HYPERSENSITIVITY [None]
  - NASOPHARYNGITIS [None]
  - NERVOUSNESS [None]
  - PARANOIA [None]
  - WHEEZING [None]
